FAERS Safety Report 19867781 (Version 4)
Quarter: 2023Q4

REPORT INFORMATION
  Report Type: Spontaneous
  Country: US (occurrence: US)
  Receive Date: 20210922
  Receipt Date: 20231129
  Transmission Date: 20240110
  Serious: Yes (Other)
  Sender: FDA-Public Use
  Company Number: US-JNJFOC-20210940262

PATIENT
  Age: 8 Decade
  Sex: Female

DRUGS (3)
  1. ELMIRON [Suspect]
     Active Substance: PENTOSAN POLYSULFATE SODIUM
     Indication: Cystitis interstitial
     Route: 048
     Dates: start: 201101, end: 202104
  2. PIROXICAM [Concomitant]
     Active Substance: PIROXICAM
     Indication: Anxiety
     Route: 065
     Dates: start: 2017
  3. PIROXICAM [Concomitant]
     Active Substance: PIROXICAM
     Indication: Depression

REACTIONS (2)
  - Age-related macular degeneration [Not Recovered/Not Resolved]
  - Pigmentary maculopathy [Not Recovered/Not Resolved]

NARRATIVE: CASE EVENT DATE: 20200101
